FAERS Safety Report 25091849 (Version 4)
Quarter: 2025Q2

REPORT INFORMATION
  Report Type: Spontaneous
  Country: US (occurrence: US)
  Receive Date: 20250318
  Receipt Date: 20250411
  Transmission Date: 20250717
  Serious: No
  Sender: KARYOPHARM THERAPEUTICS
  Company Number: US-KARYOPHARM-2025KPT100015

PATIENT

DRUGS (23)
  1. SELINEXOR [Suspect]
     Active Substance: SELINEXOR
     Indication: Plasma cell myeloma
     Dosage: 60 MG WEEKLY
     Route: 048
     Dates: start: 20250310, end: 2025
  2. SELINEXOR [Suspect]
     Active Substance: SELINEXOR
     Dates: start: 2025
  3. ATORVASTATIN [Concomitant]
     Active Substance: ATORVASTATIN
  4. DEXAMETHASONE [Concomitant]
     Active Substance: DEXAMETHASONE
  5. DONEPEZIL [Concomitant]
     Active Substance: DONEPEZIL
  6. FARXIGA [Concomitant]
     Active Substance: DAPAGLIFLOZIN PROPANEDIOL
  7. GABAPENTIN [Concomitant]
     Active Substance: GABAPENTIN
  8. HYDROXYZINE [Concomitant]
     Active Substance: HYDROXYZINE HYDROCHLORIDE
  9. LOSARTAN [Concomitant]
     Active Substance: LOSARTAN
  10. METOLAZONE [Concomitant]
     Active Substance: METOLAZONE
  11. METOPROLOL SUCCINATE [Concomitant]
     Active Substance: METOPROLOL SUCCINATE
  12. NYSTATIN [Concomitant]
     Active Substance: NYSTATIN
  13. PANTOPRAZOLE [Concomitant]
     Active Substance: PANTOPRAZOLE
  14. POMALYST [Concomitant]
     Active Substance: POMALIDOMIDE
  15. CHOLESTYRAMINE [Concomitant]
     Active Substance: CHOLESTYRAMINE
  16. SERTRALINE [Concomitant]
     Active Substance: SERTRALINE HYDROCHLORIDE
  17. TORSEMIDE [Concomitant]
     Active Substance: TORSEMIDE
  18. ACETAMINOPHEN [Concomitant]
     Active Substance: ACETAMINOPHEN
  19. ACYCLOVIR [Concomitant]
     Active Substance: ACYCLOVIR
  20. ALBUTEROL SULFATE [Concomitant]
     Active Substance: ALBUTEROL SULFATE
  21. APREPITANT [Concomitant]
     Active Substance: APREPITANT
  22. ARIPIPRAZOLE [Concomitant]
     Active Substance: ARIPIPRAZOLE
  23. ASPIRIN [Concomitant]
     Active Substance: ASPIRIN

REACTIONS (4)
  - Platelet count increased [Unknown]
  - Diarrhoea [Unknown]
  - Vomiting [Unknown]
  - Platelet count decreased [Unknown]

NARRATIVE: CASE EVENT DATE: 20250101
